FAERS Safety Report 10818682 (Version 8)
Quarter: 2018Q1

REPORT INFORMATION
  Report Type: Spontaneous
  Country: US (occurrence: US)
  Receive Date: 20150218
  Receipt Date: 20180221
  Transmission Date: 20180508
  Serious: No
  Sender: FDA-Public Use
  Company Number: US-PFIZER INC-2015062443

PATIENT
  Sex: Female

DRUGS (2)
  1. FLAGYL [Suspect]
     Active Substance: METRONIDAZOLE\METRONIDAZOLE HYDROCHLORIDE
     Indication: ANTIBIOTIC THERAPY
     Dosage: UNK, 1X/DAY
     Route: 048
  2. CIPRO [Suspect]
     Active Substance: CIPROFLOXACIN HYDROCHLORIDE
     Indication: ANTIBIOTIC THERAPY
     Dosage: UNK, 1X/DAY
     Route: 048

REACTIONS (4)
  - Drug hypersensitivity [Unknown]
  - Pruritus [Recovered/Resolved]
  - Diarrhoea [Recovered/Resolved]
  - Vomiting [Recovered/Resolved]
